FAERS Safety Report 9715681 (Version 2)
Quarter: 2013Q4

REPORT INFORMATION
  Report Type: Spontaneous
  Country: BE (occurrence: BE)
  Receive Date: 20131127
  Receipt Date: 20131224
  Transmission Date: 20140711
  Serious: Yes (Other)
  Sender: FDA-Public Use
  Company Number: BE-AMGEN-BELSP2013082749

PATIENT
  Age: 75 Year
  Sex: Female
  Weight: 54.5 kg

DRUGS (6)
  1. PROLIA [Suspect]
     Indication: OSTEOPOROSIS
     Dosage: 60 MG, Q6MO
     Route: 058
     Dates: start: 201301
  2. CARDIOPIRIN [Concomitant]
  3. D VITAL [Concomitant]
  4. D-CURE [Concomitant]
  5. MOVICOL                            /01625101/ [Concomitant]
  6. NOVALGIN                           /00169801/ [Concomitant]

REACTIONS (3)
  - Femur fracture [Recovered/Resolved]
  - Monoclonal gammopathy [Unknown]
  - Hyperparathyroidism [Unknown]
